FAERS Safety Report 10416401 (Version 3)
Quarter: 2014Q4

REPORT INFORMATION
  Report Type: Spontaneous
  Country: US (occurrence: None)
  Receive Date: 20140604
  Receipt Date: 20141205
  Transmission Date: 20150528
  Serious: Yes (Other)
  Sender: FDA-Public Use
  Company Number: 163-POMAL-14051130

PATIENT
  Age: 75 Year
  Sex: Male
  Weight: 88.45 kg

DRUGS (45)
  1. TYLENOL [Concomitant]
     Active Substance: ACETAMINOPHEN
  2. PHENERGAN [Concomitant]
     Active Substance: PROMETHAZINE HYDROCHLORIDE
  3. CLONIDINE (CLONIDINE) [Concomitant]
     Active Substance: CLONIDINE
  4. NIASPAN (NICOTINIC ACID) [Concomitant]
  5. SIMVASTATIN (SIMVASTATIN) [Concomitant]
     Active Substance: SIMVASTATIN
  6. COREG [Concomitant]
     Active Substance: CARVEDILOL
  7. PLAVIX [Concomitant]
     Active Substance: CLOPIDOGREL BISULFATE
  8. MUCINEX (GUAFENESIN) [Concomitant]
  9. DESONIDE (DESONIDE) [Concomitant]
  10. VALSARTAN (VALSARTAN) [Concomitant]
     Active Substance: VALSARTAN
  11. BENZONATATE (BENZONATATE) [Concomitant]
     Active Substance: BENZONATATE
  12. AZITHROMYCIN [Concomitant]
     Active Substance: AZITHROMYCIN ANHYDROUS
  13. PREDNISOLONE (PREDNISOLONE) [Concomitant]
     Active Substance: PREDNISOLONE
  14. ATORVASTATIN (ATORVASTATIN) [Concomitant]
     Active Substance: ATORVASTATIN
  15. METFORMIN [Concomitant]
     Active Substance: METFORMIN HYDROCHLORIDE
  16. PHENERGAN [Concomitant]
     Active Substance: PROMETHAZINE HYDROCHLORIDE
  17. ZOLPIDEM (ZOLPIDEM) [Concomitant]
     Active Substance: ZOLPIDEM TARTRATE
  18. DEXAMETHASONE (DEXAMETHASONE) [Concomitant]
     Active Substance: DEXAMETHASONE
  19. TUSSIN (GUAIFENESIN, DEXTROMETHORPHAN, HYDROBROMIDE, PHENYLPROPANOLAMINE HYDROCHLORIDE) [Concomitant]
  20. HYDROCODONE/ACETAMINOPHEN (REMEDEINE) [Concomitant]
  21. DIPHENOXYLATE/ATROPINE  (ATROPINE SULOFATE, DIPHENOLXYLATE HYDROCHLORIDE) [Concomitant]
  22. CHERATUSSIN [Concomitant]
     Active Substance: AMMONIUM CHLORIDE\DEXTROMETHORPHAN\SODIUM CITRATE
  23. VITAMIN  D2 (ERGOCALCIFEROL) [Concomitant]
  24. ASPIRIN. [Concomitant]
     Active Substance: ASPIRIN
  25. BENADRYL (CLONALIN) [Concomitant]
  26. NITROLINGUAL (GLYCERYL TRINITRATE) [Concomitant]
  27. CLOPIDOGREL [Concomitant]
     Active Substance: CLOPIDOGREL BISULFATE
  28. ZANTAC [Concomitant]
     Active Substance: RANITIDINE HYDROCHLORIDE
  29. HYDROCODONE (HYDROCODONE) [Concomitant]
     Active Substance: HYDROCODONE
  30. TOBRAMYCIN (TOBRAMYCIN) [Concomitant]
  31. ALAVERT (LORATADINE) [Concomitant]
  32. ALPRAZOLAM (ALPRAZOLAM) [Concomitant]
     Active Substance: ALPRAZOLAM
  33. DIPHENHYDRAMINE HCL (DIPHENHYDRAMINE HYDROCHLORIDE) [Concomitant]
  34. VALACYCLOVIR (VALACICLOVIR HYDROCHLORIDE) [Concomitant]
  35. POMALYST [Suspect]
     Active Substance: POMALIDOMIDE
     Indication: PLASMA CELL MYELOMA
     Dosage: 4 MG, 21 IN 28 D
     Route: 048
     Dates: start: 20130523, end: 2013
  36. DIOVAN [Concomitant]
     Active Substance: VALSARTAN
  37. ZYRTEC [Concomitant]
     Active Substance: CETIRIZINE HYDROCHLORIDE
  38. ECOTRIN [Concomitant]
     Active Substance: ASPIRIN
  39. KELFEX (CEFALEXIN) [Concomitant]
  40. FOLIC ACID (FOLIC ACID) [Concomitant]
     Active Substance: FOLIC ACID
  41. VENTOLIN [Concomitant]
     Active Substance: ALBUTEROL SULFATE
  42. BACTRIM DS (SULFAMETHOXAZOLE, TRIMETHOPRIM) [Concomitant]
  43. HYDROXYZINE (HYDROXYZINE) [Concomitant]
     Active Substance: HYDROXYZINE HYDROCHLORIDE
  44. XANAX [Concomitant]
     Active Substance: ALPRAZOLAM
  45. FLORASTOR (SDACCHAROMYCES BOULARDII) [Concomitant]

REACTIONS (6)
  - Diarrhoea [None]
  - Drug intolerance [None]
  - Weight decreased [None]
  - Abdominal discomfort [None]
  - Vomiting [None]
  - Neuropathy peripheral [None]

NARRATIVE: CASE EVENT DATE: 2014
